FAERS Safety Report 9724552 (Version 4)
Quarter: 2014Q1

REPORT INFORMATION
  Report Type: Spontaneous
  Country: US (occurrence: US)
  Receive Date: 20131202
  Receipt Date: 20140221
  Transmission Date: 20141002
  Serious: Yes (Other)
  Sender: FDA-Public Use
  Company Number: US-AMGEN-USASP2013082273

PATIENT
  Age: 65 Year
  Sex: Female
  Weight: 64.85 kg

DRUGS (26)
  1. ENBREL [Suspect]
     Indication: RHEUMATOID ARTHRITIS
     Dosage: 50 MG, EVERY WEEK
     Route: 058
  2. ENBREL [Suspect]
     Dosage: UNK
     Route: 065
  3. CELEBREX [Concomitant]
     Dosage: 200 MG, UNK
  4. VOLTAREN                           /00372301/ [Concomitant]
     Dosage: 25 MG, UNK
  5. FLUCONAZOLE [Concomitant]
     Dosage: 100 MG, UNK
  6. FUROSEMIDE [Concomitant]
     Dosage: 40 MG, UNK
  7. HYDROMORPHONE [Concomitant]
     Dosage: 2 MG, UNK
  8. SYSTANE [Concomitant]
     Dosage: 0.4% - 0.3% UNK
  9. VIVELLE-DOT [Concomitant]
     Dosage: 0.1 MG, UNK
  10. AFRIN                              /00070001/ [Concomitant]
     Dosage: 0.05 %, UNK
  11. SUMATRIPTAN [Concomitant]
     Dosage: 50 MG, UNK
  12. ATENOLOL [Concomitant]
     Dosage: 25 MG, UNK
  13. CLONAZEPAM [Concomitant]
     Dosage: 0.5 MG, UNK
  14. CLINDAMYCIN [Concomitant]
     Dosage: 150 MG, UNK
  15. FOSINOPRIL [Concomitant]
     Dosage: 10 MG, UNK
  16. RANITIDINE [Concomitant]
     Dosage: 75 MG, UNK
  17. PROMETHAZINE [Concomitant]
     Dosage: 25 MG, UNK
  18. NYSTATIN [Concomitant]
     Dosage: 100000 UNK, UNK
  19. LEVOTHYROXIN [Concomitant]
     Dosage: 25 MUG, UNK
  20. NEXIUM                             /01479302/ [Concomitant]
     Dosage: 40 MG, UNK
  21. LUNESTA [Concomitant]
     Dosage: 1 MG, UNK
  22. L-METHYLFOLATE CALCIUM [Concomitant]
     Dosage: UNK
  23. ADDERALL [Concomitant]
     Dosage: 15 MG, UNK
  24. MAALOX                             /00082501/ [Concomitant]
     Dosage: UNK
  25. VITAMIN D2 [Concomitant]
     Dosage: 400 UNIT, UNK
  26. DOXYCYCLINE [Concomitant]
     Dosage: 75 MG, UNK

REACTIONS (31)
  - Urinary retention [Recovered/Resolved]
  - Vision blurred [Recovered/Resolved]
  - Micturition disorder [Recovered/Resolved]
  - Arthralgia [Not Recovered/Not Resolved]
  - Back pain [Not Recovered/Not Resolved]
  - Abdominal pain [Not Recovered/Not Resolved]
  - Local swelling [Unknown]
  - Nasal congestion [Unknown]
  - Muscular weakness [Unknown]
  - Pain [Not Recovered/Not Resolved]
  - Urinary incontinence [Not Recovered/Not Resolved]
  - Musculoskeletal discomfort [Not Recovered/Not Resolved]
  - Joint swelling [Not Recovered/Not Resolved]
  - Pain in extremity [Not Recovered/Not Resolved]
  - Cyst [Not Recovered/Not Resolved]
  - Aphasia [Not Recovered/Not Resolved]
  - Confusional state [Not Recovered/Not Resolved]
  - Mobility decreased [Not Recovered/Not Resolved]
  - Onychoclasis [Not Recovered/Not Resolved]
  - Onychomadesis [Not Recovered/Not Resolved]
  - Hair disorder [Not Recovered/Not Resolved]
  - Skin disorder [Not Recovered/Not Resolved]
  - Spinal pain [Not Recovered/Not Resolved]
  - Condition aggravated [Not Recovered/Not Resolved]
  - Pain in extremity [Unknown]
  - Drug ineffective [Unknown]
  - Vaginal cyst [Unknown]
  - Injection site discolouration [Not Recovered/Not Resolved]
  - Injection site swelling [Not Recovered/Not Resolved]
  - Injection site pain [Recovered/Resolved]
  - Injection site bruising [Unknown]
